FAERS Safety Report 15754815 (Version 32)
Quarter: 2022Q1

REPORT INFORMATION
  Report Type: Other
  Country: DE (occurrence: None)
  Receive Date: 20181224
  Receipt Date: 20220316
  Transmission Date: 20220424
  Serious: Yes (Hospitalization, Other)
  Sender: FDA-Public Use
  Company Number: DE-ROCHE-2235012

PATIENT
  Age: 38 Year
  Sex: Female
  Weight: 69 kg

DRUGS (20)
  1. OCREVUS [Suspect]
     Active Substance: OCRELIZUMAB
     Indication: Progressive relapsing multiple sclerosis
     Route: 042
     Dates: start: 20181212
  2. OCREVUS [Suspect]
     Active Substance: OCRELIZUMAB
     Indication: Secondary progressive multiple sclerosis
     Route: 042
     Dates: start: 20181227
  3. OCREVUS [Suspect]
     Active Substance: OCRELIZUMAB
     Dosage: ONCE IN A 201 DAYS
     Route: 042
     Dates: start: 20190627
  4. OCREVUS [Suspect]
     Active Substance: OCRELIZUMAB
     Route: 042
     Dates: start: 20200731, end: 20200731
  5. OCREVUS [Suspect]
     Active Substance: OCRELIZUMAB
     Route: 042
     Dates: start: 20210521
  6. CORTISONE [Suspect]
     Active Substance: CORTISONE
     Indication: Multiple sclerosis relapse
     Dosage: 3 X 500 MG
     Route: 065
     Dates: start: 201901
  7. CERTOPARIN SODIUM [Suspect]
     Active Substance: CERTOPARIN SODIUM
     Indication: Thrombosis prophylaxis
     Route: 065
  8. CERTOPARIN SODIUM [Suspect]
     Active Substance: CERTOPARIN SODIUM
     Route: 065
     Dates: start: 20201007
  9. COVID-19 VACCINE NOS [Suspect]
     Active Substance: COVID-19 VACCINE NOS
     Indication: Product used for unknown indication
     Route: 065
  10. BRONCHICUM ELIXIR [Concomitant]
  11. ACETAMINOPHEN [Concomitant]
     Active Substance: ACETAMINOPHEN
  12. OMEPRAZOLE [Concomitant]
     Active Substance: OMEPRAZOLE
  13. DIMENHYDRINATE [Concomitant]
     Active Substance: DIMENHYDRINATE
  14. OPIPRAMOL [Concomitant]
     Active Substance: OPIPRAMOL
  15. SPASMEX (GERMANY) [Concomitant]
  16. PREGABALIN [Concomitant]
     Active Substance: PREGABALIN
     Dosage: 2 TO 4 TABLETS DAILY
     Route: 065
  17. PREGABALIN [Concomitant]
     Active Substance: PREGABALIN
  18. VITAMIN D3 [Concomitant]
     Active Substance: CHOLECALCIFEROL
  19. ESCITALOPRAM [Concomitant]
     Active Substance: ESCITALOPRAM OXALATE
  20. COVID-19 VACCINE [Concomitant]

REACTIONS (43)
  - Pyelitis [Recovered/Resolved]
  - Multiple sclerosis relapse [Not Recovered/Not Resolved]
  - Respiratory tract infection bacterial [Unknown]
  - Hypersensitivity [Recovering/Resolving]
  - Blood pressure fluctuation [Recovered/Resolved]
  - Abdominal pain upper [Recovered/Resolved]
  - Dizziness [Recovered/Resolved]
  - Fatigue [Not Recovered/Not Resolved]
  - Fall [Unknown]
  - Neuralgia [Recovered/Resolved]
  - Blood pressure decreased [Recovered/Resolved]
  - Body temperature increased [Recovered/Resolved]
  - Urinary tract infection [Not Recovered/Not Resolved]
  - Renal pain [Not Recovered/Not Resolved]
  - Contusion [Recovered/Resolved]
  - Muscular weakness [Not Recovered/Not Resolved]
  - Abdominal pain upper [Recovered/Resolved]
  - Nasopharyngitis [Recovered/Resolved]
  - Nausea [Recovered/Resolved]
  - Gait disturbance [Not Recovered/Not Resolved]
  - Eyelids pruritus [Recovered/Resolved]
  - Nausea [Not Recovered/Not Resolved]
  - Bronchitis [Recovered/Resolved]
  - Pruritus [Recovered/Resolved]
  - Viral upper respiratory tract infection [Recovered/Resolved]
  - Muscle spasticity [Recovered/Resolved]
  - Wheelchair user [Not Recovered/Not Resolved]
  - Allergy to animal [Recovered/Resolved]
  - White blood cell count increased [Recovered/Resolved]
  - Pain in extremity [Recovered/Resolved]
  - Fatigue [Recovered/Resolved]
  - Irritable bowel syndrome [Recovered/Resolved]
  - B-lymphocyte count decreased [Recovered/Resolved]
  - Palpitations [Recovered/Resolved]
  - Heart rate increased [Recovered/Resolved]
  - Weight increased [Recovering/Resolving]
  - Headache [Not Recovered/Not Resolved]
  - Influenza like illness [Unknown]
  - C-reactive protein increased [Not Recovered/Not Resolved]
  - Lymphocyte count increased [Not Recovered/Not Resolved]
  - Autoimmune thyroiditis [Recovering/Resolving]
  - Ankylosing spondylitis [Recovering/Resolving]
  - Disturbance in attention [Not Recovered/Not Resolved]

NARRATIVE: CASE EVENT DATE: 20181212
